FAERS Safety Report 5271846-5 (Version None)
Quarter: 2007Q1

REPORT INFORMATION
  Report Type: 
  Country: None (occurrence: None)
  Receive Date: 20070321
  Receipt Date: 20070312
  Transmission Date: 20070707
  Serious: Yes (Hospitalization, Other)
  Sender: FDA-Public Use
  Company Number: FR-PFIZER INC-2007020156

PATIENT
  Age: 70 Year
  Sex: Male

DRUGS (4)
  1. IRINOTECAN HCL [Suspect]
     Indication: RECTAL CANCER
  2. AVASTIN [Suspect]
     Indication: RECTAL CANCER
  3. CALCIUM FOLINATE [Concomitant]
  4. FLUOROURACIL [Concomitant]

REACTIONS (4)
  - GENERAL PHYSICAL HEALTH DETERIORATION [None]
  - PRODUCTIVE COUGH [None]
  - PYREXIA [None]
  - RECTAL HAEMORRHAGE [None]
